FAERS Safety Report 5112804-0 (Version None)
Quarter: 2006Q3

REPORT INFORMATION
  Report Type: 
  Country: None (occurrence: None)
  Receive Date: 20060922
  Receipt Date: 20060803
  Transmission Date: 20061208
  Serious: Yes (Hospitalization, Other)
  Sender: FDA-Public Use
  Company Number: FR-MERCK-0608USA01540

PATIENT
  Age: 79 Year
  Sex: Male

DRUGS (6)
  1. ZOCOR [Suspect]
     Route: 048
     Dates: end: 20060720
  2. LASIX [Suspect]
     Route: 048
  3. DIGOXIN [Suspect]
     Route: 048
  4. GLUCOPHAGE [Suspect]
     Route: 048
     Dates: end: 20060720
  5. COUMADIN [Suspect]
     Route: 048
  6. COZAAR [Suspect]
     Route: 048

REACTIONS (4)
  - ACUTE LEUKAEMIA [None]
  - AGRANULOCYTOSIS [None]
  - HYPERSENSITIVITY [None]
  - NEUTROPHIL COUNT DECREASED [None]
